FAERS Safety Report 10108797 (Version 1)
Quarter: 2014Q2

REPORT INFORMATION
  Report Type: Report from Study
  Country: US (occurrence: US)
  Receive Date: 20140425
  Receipt Date: 20140425
  Transmission Date: 20141212
  Serious: Yes (Other)
  Sender: FDA-Public Use
  Company Number: US-ROCHE-1388637

PATIENT
  Sex: Male
  Weight: 61.29 kg

DRUGS (5)
  1. LUCENTIS [Suspect]
     Indication: PRODUCT USED FOR UNKNOWN INDICATION
     Route: 050
  2. LUCENTIS [Suspect]
     Dosage: RIGHT EYE
     Route: 065
  3. ASPIRIN [Concomitant]
  4. LIPITOR [Concomitant]
  5. PLAVIX [Concomitant]

REACTIONS (4)
  - Feeling abnormal [Unknown]
  - Blindness unilateral [Unknown]
  - Hypoacusis [Unknown]
  - Fear [Unknown]
